FAERS Safety Report 17734095 (Version 1)
Quarter: 2020Q2

REPORT INFORMATION
  Report Type: Spontaneous
  Country: BE (occurrence: BE)
  Receive Date: 20200501
  Receipt Date: 20200501
  Transmission Date: 20200714
  Serious: Yes (Hospitalization)
  Sender: FDA-Public Use
  Company Number: BE-JNJFOC-20200438665

PATIENT
  Sex: Female

DRUGS (2)
  1. RIVAROXABAN [Suspect]
     Active Substance: RIVAROXABAN
     Indication: PRODUCT USED FOR UNKNOWN INDICATION
     Dosage: 15 MG
     Route: 048
     Dates: start: 20200205, end: 20200208
  2. CLEXANE [Concomitant]
     Active Substance: ENOXAPARIN SODIUM

REACTIONS (3)
  - Headache [Recovered/Resolved]
  - Vision blurred [Recovered/Resolved]
  - Photophobia [Recovered/Resolved]
